FAERS Safety Report 4294971-4 (Version None)
Quarter: 2004Q1

REPORT INFORMATION
  Report Type: 
  Country: None (occurrence: None)
  Receive Date: 20040216
  Receipt Date: 20030325
  Transmission Date: 20041129
  Serious: No
  Sender: FDA-Public Use
  Company Number: US-GLAXOSMITHKLINE-A0401822A

PATIENT
  Age: 33 Year
  Sex: Male
  Weight: 62.7 kg

DRUGS (2)
  1. LAMICTAL [Suspect]
     Indication: EPILEPSY
     Route: 048
     Dates: end: 20030325
  2. UNKNOWN MEDICATION [Concomitant]

REACTIONS (2)
  - DIPLOPIA [None]
  - GAIT DISTURBANCE [None]
